FAERS Safety Report 20407524 (Version 1)
Quarter: 2022Q1

REPORT INFORMATION
  Report Type: Spontaneous
  Country: PT (occurrence: PT)
  Receive Date: 20220131
  Receipt Date: 20220131
  Transmission Date: 20220423
  Serious: Yes (Hospitalization, Other)
  Sender: FDA-Public Use
  Company Number: PT-ANIPHARMA-2022-PT-000010

PATIENT
  Age: 57 Year
  Sex: Female

DRUGS (3)
  1. LITHIUM [Suspect]
     Active Substance: LITHIUM
     Indication: Bipolar disorder
     Dosage: 400 MG DAILY
  2. VALPROATE SODIUM [Concomitant]
     Active Substance: VALPROATE SODIUM
     Dosage: 250 MG TWICE DAILY
  3. LORAZEPAM [Concomitant]
     Active Substance: LORAZEPAM
     Dosage: 2.5 MG DAILY

REACTIONS (6)
  - Pancreatitis [Recovered/Resolved]
  - Tubulointerstitial nephritis [Recovered/Resolved]
  - Hypernatraemia [Recovered/Resolved]
  - Chronic kidney disease [Recovered/Resolved]
  - Nephrogenic diabetes insipidus [Recovered/Resolved]
  - Hyperparathyroidism [Recovered/Resolved]
